FAERS Safety Report 6917355-6 (Version None)
Quarter: 2010Q3

REPORT INFORMATION
  Report Type: 
  Country: None (occurrence: None)
  Receive Date: 20100810
  Receipt Date: 20100803
  Transmission Date: 20110219
  Serious: Yes (Hospitalization)
  Sender: FDA-Public Use
  Company Number: US-ELI_LILLY_AND_COMPANY-US201008001058

PATIENT
  Sex: Male

DRUGS (9)
  1. GEMCITABINE HCL [Suspect]
     Indication: TRANSITIONAL CELL CARCINOMA
     Dosage: 1640 MG, UNK
     Dates: start: 20100609
  2. PACLITAXEL [Suspect]
     Indication: TRANSITIONAL CELL CARCINOMA
     Dosage: 533 MG, UNK
     Dates: start: 20100609
  3. CARBOPLATIN [Suspect]
     Indication: TRANSITIONAL CELL CARCINOMA
     Dosage: 482 MG, UNK
     Dates: start: 20100609
  4. ACETAMINOPHEN [Concomitant]
     Dosage: 500 MG, UNK
     Dates: start: 20100523
  5. COLACE [Concomitant]
     Dosage: 100 MG, UNK
  6. METOPROLOL TARTRATE [Concomitant]
     Dosage: 50 MG, UNK
     Dates: start: 20100203
  7. WARFARIN SODIUM [Concomitant]
     Indication: ATRIAL FLUTTER
     Dosage: 25 MG, UNK
     Route: 048
     Dates: start: 20061122
  8. CIPROFLOXACIN [Concomitant]
     Dosage: 500 MG, UNK
     Route: 048
  9. LOVENOX [Concomitant]
     Indication: ATRIAL FLUTTER
     Dosage: 80 MG, UNK
     Route: 058
     Dates: start: 20061116

REACTIONS (1)
  - HAEMARTHROSIS [None]
